FAERS Safety Report 12261111 (Version 1)
Quarter: 2016Q2

REPORT INFORMATION
  Report Type: Spontaneous
  Country: US (occurrence: US)
  Receive Date: 20160412
  Receipt Date: 20160412
  Transmission Date: 20160815
  Serious: No
  Sender: FDA-Public Use
  Company Number: US-INCYTE CORPORATION-2016IN001108

PATIENT
  Sex: Male

DRUGS (1)
  1. JAKAFI [Suspect]
     Active Substance: RUXOLITINIB
     Dosage: 20 MG, BID
     Route: 048
     Dates: start: 20160128

REACTIONS (5)
  - Skin haemorrhage [Unknown]
  - Insomnia [Unknown]
  - Dyspnoea [Unknown]
  - Skin lesion [Unknown]
  - Pruritus [Unknown]
